FAERS Safety Report 4631806-1 (Version None)
Quarter: 2005Q2

REPORT INFORMATION
  Report Type: 
  Country: None (occurrence: None)
  Receive Date: 20050411
  Receipt Date: 20050330
  Transmission Date: 20051028
  Serious: Yes (Other)
  Sender: FDA-Public Use
  Company Number: AU-JNJFOC-20050307645

PATIENT
  Sex: Male

DRUGS (1)
  1. REMICADE [Suspect]
     Route: 042

REACTIONS (3)
  - BEHCET'S SYNDROME [None]
  - MULTI-ORGAN DISORDER [None]
  - THERAPEUTIC RESPONSE DECREASED [None]
